FAERS Safety Report 14262536 (Version 1)
Quarter: 2017Q4

REPORT INFORMATION
  Report Type: Spontaneous
  Country: US (occurrence: US)
  Receive Date: 20171208
  Receipt Date: 20171208
  Transmission Date: 20180321
  Serious: No
  Sender: FDA-Public Use
  Company Number: US-ASTRAZENECA-2017SF20816

PATIENT
  Age: 82 Year
  Sex: Male

DRUGS (5)
  1. OMEPRAZOLE MAGNESIUM. [Suspect]
     Active Substance: OMEPRAZOLE MAGNESIUM
     Indication: GASTROOESOPHAGEAL REFLUX DISEASE
     Dosage: 20MG TIME RELEASED CAPSULE, TAKE 1-2 CAPSULES DEPENDING ON WHAT HE EATS, SOME DAYS HE TAKES 20MG ...
     Route: 048
  2. OMEPRAZOLE MAGNESIUM. [Suspect]
     Active Substance: OMEPRAZOLE MAGNESIUM
     Indication: GASTROOESOPHAGEAL REFLUX DISEASE
     Dosage: 20MG TIME RELEASED CAPSULE, TAKE 1-2 CAPSULES DEPENDING ON WHAT HE EATS, SOME DAYS HE TAKES 20MG ...
     Route: 048
  3. OMEPRAZOLE MAGNESIUM. [Suspect]
     Active Substance: OMEPRAZOLE MAGNESIUM
     Indication: GASTROOESOPHAGEAL REFLUX DISEASE
     Dosage: OTC
     Route: 048
  4. CALTRATE WITH VITAMIN D [Suspect]
     Active Substance: CALCIUM CARBONATE\CHOLECALCIFEROL
     Indication: OSTEOPENIA
     Dosage: 1 TABLET ONCE DAILY, SPLIT BETWEEN 2 MEALS, MORNING AND EVENING
     Route: 065
     Dates: start: 20171029
  5. OMEPRAZOLE MAGNESIUM. [Suspect]
     Active Substance: OMEPRAZOLE MAGNESIUM
     Indication: GASTROOESOPHAGEAL REFLUX DISEASE
     Dosage: OTC
     Route: 048

REACTIONS (2)
  - Drug intolerance [Unknown]
  - Dizziness [Recovered/Resolved]

NARRATIVE: CASE EVENT DATE: 20171030
